FAERS Safety Report 8202953-2 (Version None)
Quarter: 2012Q1

REPORT INFORMATION
  Report Type: 
  Country: None (occurrence: None)
  Receive Date: 20120312
  Receipt Date: 20120312
  Transmission Date: 20120608
  Serious: Yes (Other)
  Sender: FDA-Public Use
  Company Number: US-PFIZER INC-2012000927

PATIENT
  Sex: Female
  Weight: 55 kg

DRUGS (5)
  1. XALATAN [Suspect]
     Indication: GLAUCOMA
     Dosage: 0.005% OU, QD
     Route: 047
  2. ALPHAGAN [Concomitant]
     Dosage: UNK, 2X/DAY
  3. XALATAN [Suspect]
     Dosage: ONE DROP IN EACH EYE,  1X/DAY
     Route: 047
     Dates: end: 20111201
  4. ALPHAGAN P [Concomitant]
     Dosage: 0.1%, ONE DROP IN LEFT EYE 2X/DAY
  5. COSOPT [Concomitant]
     Dosage: 2%-0.5%, ONE DROP IN LEFT EYE, BID

REACTIONS (3)
  - OROPHARYNGEAL PAIN [None]
  - INTRAOCULAR PRESSURE TEST ABNORMAL [None]
  - DRY EYE [None]
